FAERS Safety Report 25488852 (Version 1)
Quarter: 2025Q2

REPORT INFORMATION
  Report Type: Spontaneous
  Country: CN (occurrence: CN)
  Receive Date: 20250627
  Receipt Date: 20250627
  Transmission Date: 20250717
  Serious: Yes (Hospitalization)
  Sender: ORGANON
  Company Number: CN-ORGANON-O2506CHN002560

PATIENT
  Age: 19 Year
  Sex: Female
  Weight: 56 kg

DRUGS (12)
  1. REMERON [Suspect]
     Active Substance: MIRTAZAPINE
     Indication: Depression
     Dosage: 15MG, QD, ORALLY
     Route: 048
     Dates: start: 20250527, end: 20250531
  2. REMERON [Suspect]
     Active Substance: MIRTAZAPINE
     Indication: Psychotic symptom
  3. VENLAFAXINE HYDROCHLORIDE [Concomitant]
     Active Substance: VENLAFAXINE HYDROCHLORIDE
     Indication: Depression
     Dosage: 150 MILLIGRAM, QD
     Route: 048
  4. VENLAFAXINE HYDROCHLORIDE [Concomitant]
     Active Substance: VENLAFAXINE HYDROCHLORIDE
     Indication: Psychotic symptom
     Dosage: 225MG, QD, ORALLY
     Route: 048
     Dates: start: 20250526, end: 20250531
  5. VENLAFAXINE HYDROCHLORIDE [Concomitant]
     Active Substance: VENLAFAXINE HYDROCHLORIDE
     Dosage: 150 MILLIGRAM, QD
     Route: 048
  6. VENLAFAXINE HYDROCHLORIDE [Concomitant]
     Active Substance: VENLAFAXINE HYDROCHLORIDE
     Dosage: 225MG, QD, ORALLY
     Route: 048
     Dates: start: 20250604
  7. QUETIAPINE FUMARATE [Concomitant]
     Active Substance: QUETIAPINE FUMARATE
     Indication: Depression
     Dosage: 100MG, QD, ORALLY
     Route: 048
     Dates: start: 20250429, end: 20250531
  8. QUETIAPINE FUMARATE [Concomitant]
     Active Substance: QUETIAPINE FUMARATE
     Indication: Psychotic symptom
  9. LORAZEPAM [Concomitant]
     Active Substance: LORAZEPAM
     Indication: Depression
     Dosage: 1MG, QD, ORALLY
     Route: 048
     Dates: start: 20250529, end: 20250531
  10. LORAZEPAM [Concomitant]
     Active Substance: LORAZEPAM
     Indication: Psychotic symptom
  11. LITHIUM CARBONATE [Concomitant]
     Active Substance: LITHIUM CARBONATE
     Indication: Depression
     Dosage: 0.3G, BID, ORALLY
     Route: 048
     Dates: start: 20250529, end: 20250607
  12. LITHIUM CARBONATE [Concomitant]
     Active Substance: LITHIUM CARBONATE
     Indication: Psychotic symptom

REACTIONS (6)
  - Dysphoria [Recovered/Resolved]
  - Extrasystoles [Recovered/Resolved]
  - Limb discomfort [Recovered/Resolved]
  - Insomnia [Unknown]
  - Feeling jittery [Unknown]
  - Impatience [Unknown]

NARRATIVE: CASE EVENT DATE: 20250527
